FAERS Safety Report 4270468-2 (Version None)
Quarter: 2004Q1

REPORT INFORMATION
  Report Type: 
  Country: None (occurrence: None)
  Receive Date: 20040114
  Receipt Date: 20040102
  Transmission Date: 20041129
  Serious: Yes (Death, Life-Threatening, Hospitalization)
  Sender: FDA-Public Use
  Company Number: FR-GLAXOSMITHKLINE-B0319178A

PATIENT
  Age: 82 Year
  Sex: Male

DRUGS (15)
  1. AMOXICILLIN AND CLAVULANATE POTASSIUM [Suspect]
     Indication: CHRONIC OBSTRUCTIVE AIRWAYS DISEASE
     Dosage: 1000MG PER DAY
     Route: 048
     Dates: start: 20031106, end: 20031108
  2. ACETAMINOPHEN W/ CODEINE [Suspect]
     Dates: start: 20031108
  3. PREVISCAN [Suspect]
     Dosage: 3000MG PER DAY
     Dates: start: 20031108
  4. PLAVIX [Suspect]
     Route: 048
     Dates: start: 20030615
  5. HEXAQUINE [Suspect]
     Route: 048
     Dates: end: 20030615
  6. ACETAMINOPHEN [Suspect]
     Route: 048
     Dates: start: 20031108
  7. NICORANDIL [Concomitant]
     Dosage: 20MG PER DAY
     Dates: start: 20031119
  8. BISOPROLOL FUMARATE [Concomitant]
     Dosage: 5MG THREE TIMES PER DAY
  9. MOLSIDOMINE [Concomitant]
     Dosage: 4MG THREE TIMES PER DAY
  10. SIMVASTATIN [Concomitant]
     Dosage: 20MG PER DAY
  11. TAMSULOSIN [Concomitant]
  12. TRIMETAZIDINE HYDROCHLORIDE [Concomitant]
     Dosage: 20MG THREE TIMES PER DAY
  13. BUFLOMEDIL [Concomitant]
     Dosage: 300MG TWICE PER DAY
  14. TIANEPTINE [Concomitant]
     Dosage: 12.5MG THREE TIMES PER DAY
  15. TRINITRIN [Concomitant]
     Dosage: 10MG PER DAY

REACTIONS (12)
  - ANGINA UNSTABLE [None]
  - CHRONIC OBSTRUCTIVE AIRWAYS DISEASE [None]
  - CHRONIC OBSTRUCTIVE AIRWAYS DISEASE EXACERBATED [None]
  - CONDITION AGGRAVATED [None]
  - COOMBS POSITIVE HAEMOLYTIC ANAEMIA [None]
  - HAEMATURIA [None]
  - HYPERSENSITIVITY [None]
  - HYPERURICAEMIA [None]
  - NORMOCHROMIC NORMOCYTIC ANAEMIA [None]
  - OVERDOSE [None]
  - RENAL FAILURE ACUTE [None]
  - THROMBOCYTOPENIA [None]
